FAERS Safety Report 6573798-4 (Version None)
Quarter: 2010Q1

REPORT INFORMATION
  Report Type: 
  Country: None (occurrence: None)
  Receive Date: 20100208
  Receipt Date: 20100203
  Transmission Date: 20100710
  Serious: Yes (Other)
  Sender: FDA-Public Use
  Company Number: CA-BRISTOL-MYERS SQUIBB COMPANY-14866735

PATIENT
  Age: 39 Year
  Sex: Male

DRUGS (1)
  1. COUMADIN [Suspect]
     Dates: start: 20090601

REACTIONS (3)
  - INTERNATIONAL NORMALISED RATIO DECREASED [None]
  - RETINAL VASCULAR THROMBOSIS [None]
  - VISION BLURRED [None]
